FAERS Safety Report 16119486 (Version 1)
Quarter: 2019Q1

REPORT INFORMATION
  Report Type: Spontaneous
  Country: US (occurrence: US)
  Receive Date: 20190326
  Receipt Date: 20190326
  Transmission Date: 20190418
  Serious: No
  Sender: FDA-Public Use
  Company Number: US-TEVA-2019-US-1020542

PATIENT
  Sex: Female

DRUGS (1)
  1. EQ MICON 7 DISPOSAL [Suspect]
     Active Substance: MICONAZOLE
     Dates: start: 20190220, end: 20190222

REACTIONS (1)
  - Thermal burn [Unknown]

NARRATIVE: CASE EVENT DATE: 20190222
